FAERS Safety Report 13486427 (Version 1)
Quarter: 2017Q2

REPORT INFORMATION
  Report Type: Report from Study
  Country: US (occurrence: US)
  Receive Date: 20170426
  Receipt Date: 20170426
  Transmission Date: 20170830
  Serious: Yes (Other)
  Sender: FDA-Public Use
  Company Number: US-NAPPMUNDI-USA-2012-0091825

PATIENT
  Age: 62 Year
  Sex: Female

DRUGS (3)
  1. OXYCODONE HYDROCHLORIDE. [Suspect]
     Active Substance: OXYCODONE HYDROCHLORIDE
     Dosage: 80 MG, Q8H
     Route: 048
  2. OXYCODONE HYDROCHLORIDE. [Suspect]
     Active Substance: OXYCODONE HYDROCHLORIDE
     Indication: PRODUCT USED FOR UNKNOWN INDICATION
     Dosage: 80 MG, PM
     Route: 048
  3. OXYCODONE HYDROCHLORIDE. [Suspect]
     Active Substance: OXYCODONE HYDROCHLORIDE
     Dosage: 40 MG, AM
     Route: 048

REACTIONS (6)
  - Drug withdrawal syndrome [Unknown]
  - Nervousness [Unknown]
  - Off label use [Recovered/Resolved]
  - Pain [Unknown]
  - Knee operation [Unknown]
  - Hypertension [Unknown]

NARRATIVE: CASE EVENT DATE: 20120814
